FAERS Safety Report 19329159 (Version 1)
Quarter: 2021Q2

REPORT INFORMATION
  Report Type: Spontaneous
  Country: JP (occurrence: JP)
  Receive Date: 20210528
  Receipt Date: 20210528
  Transmission Date: 20210717
  Serious: Yes (Hospitalization)
  Sender: FDA-Public Use
  Company Number: JP-PFIZER INC-2021573626

PATIENT
  Age: 6 Decade
  Weight: 45 kg

DRUGS (4)
  1. CELECOX [Suspect]
     Active Substance: CELECOXIB
     Dosage: UNK UNK, UNKNOWN FREQ.
     Route: 048
  2. CELECOX [Suspect]
     Active Substance: CELECOXIB
     Dosage: THE FREQUENCY OF CELECOXIB INTAKE HAD INCREASED, SOMETIMES TOOK AND INTERRUPTED THE DRUG
     Route: 048
  3. CELECOX [Suspect]
     Active Substance: CELECOXIB
     Indication: PAIN
     Dosage: 100 MG, TWICE DAILY, MORNING AND EVENING
     Route: 048
     Dates: start: 20210410
  4. CELECOX [Suspect]
     Active Substance: CELECOXIB
     Dosage: 100 MG, 1X/DAY
     Route: 048

REACTIONS (3)
  - Pain [Unknown]
  - Intentional product misuse [Unknown]
  - Renal disorder [Unknown]
